FAERS Safety Report 24905815 (Version 1)
Quarter: 2025Q1

REPORT INFORMATION
  Report Type: Spontaneous
  Country: US (occurrence: None)
  Receive Date: 20250130
  Receipt Date: 20250130
  Transmission Date: 20250409
  Serious: Yes (unspecified)
  Sender: FDA-CTU
  Company Number: None

PATIENT
  Age: 20 Year
  Sex: Female
  Weight: 65.25 kg

DRUGS (7)
  1. TOPAMAX [Suspect]
     Active Substance: TOPIRAMATE
     Indication: Migraine
     Dates: start: 20250117, end: 20250126
  2. DORZOLAMIDE\TIMOLOL [Concomitant]
     Active Substance: DORZOLAMIDE\TIMOLOL
  3. BRIMONIDINE [Concomitant]
     Active Substance: BRIMONIDINE TARTRATE
  4. ATROPINE [Concomitant]
     Active Substance: ATROPINE
  5. PREDNISONE [Concomitant]
     Active Substance: PREDNISONE
  6. LATANOPROST [Concomitant]
     Active Substance: LATANOPROST
  7. BUSPIRONE [Concomitant]
     Active Substance: BUSPIRONE HYDROCHLORIDE

REACTIONS (3)
  - Vision blurred [None]
  - Ocular discomfort [None]
  - Visual impairment [None]

NARRATIVE: CASE EVENT DATE: 20250126
